FAERS Safety Report 9188851 (Version 1)
Quarter: 2013Q1

REPORT INFORMATION
  Report Type: Report from Study
  Country: US (occurrence: US)
  Receive Date: 20130326
  Receipt Date: 20130326
  Transmission Date: 20140127
  Serious: Yes (Hospitalization)
  Sender: FDA-Public Use
  Company Number: US-US-EMD SERONO, INC.-7198190

PATIENT
  Age: 39 None
  Sex: Female

DRUGS (5)
  1. REBIF [Suspect]
     Indication: PRODUCT USED FOR UNKNOWN INDICATION
     Route: 058
     Dates: start: 20110310, end: 20130106
  2. WELLBUTRIN [Concomitant]
     Indication: DEPRESSION
  3. ADDERALL [Concomitant]
     Indication: DEPRESSION
  4. KLONOPIN [Concomitant]
     Indication: DEPRESSION
  5. RISPERDAL [Concomitant]
     Indication: DEPRESSION

REACTIONS (3)
  - Self injurious behaviour [Unknown]
  - Depression [Unknown]
  - Presyncope [Unknown]
